FAERS Safety Report 11496296 (Version 1)
Quarter: 2015Q3

REPORT INFORMATION
  Report Type: Spontaneous
  Country: CH (occurrence: CH)
  Receive Date: 20150911
  Receipt Date: 20150911
  Transmission Date: 20151125
  Serious: Yes (Other)
  Sender: FDA-Public Use
  Company Number: PHHY2015CH106658

PATIENT
  Sex: Female

DRUGS (10)
  1. TAMOXIFEN [Suspect]
     Active Substance: TAMOXIFEN
     Indication: HORMONE THERAPY
     Route: 065
     Dates: start: 20020723, end: 20070307
  2. GOSERELIN [Suspect]
     Active Substance: GOSERELIN
     Indication: HORMONE THERAPY
     Route: 065
     Dates: start: 200208, end: 200808
  3. LEUPRORELIN [Suspect]
     Active Substance: LEUPROLIDE ACETATE
     Indication: METASTASES TO LIVER
     Route: 065
     Dates: start: 20080619
  4. LEUPRORELIN [Suspect]
     Active Substance: LEUPROLIDE ACETATE
     Indication: METASTASES TO BONE
  5. CYCLOPHOSPHAMIDE. [Suspect]
     Active Substance: CYCLOPHOSPHAMIDE
     Indication: ADJUVANT THERAPY
     Route: 065
     Dates: start: 20020425, end: 20020621
  6. DOXORUBICIN [Suspect]
     Active Substance: DOXORUBICIN
     Indication: ADJUVANT THERAPY
     Route: 065
     Dates: start: 20020425, end: 20020621
  7. EXEMESTANE. [Suspect]
     Active Substance: EXEMESTANE
     Indication: HORMONE THERAPY
     Route: 065
     Dates: start: 201001
  8. LETROZOLE SANDOZ [Suspect]
     Active Substance: LETROZOLE
     Indication: HORMONE THERAPY
     Route: 065
     Dates: start: 200811, end: 200912
  9. EXEMESTANE. [Suspect]
     Active Substance: EXEMESTANE
     Dosage: UNK
     Route: 065
     Dates: start: 20120823, end: 20121020
  10. EVEROLIMUS [Suspect]
     Active Substance: EVEROLIMUS
     Indication: HORMONE THERAPY
     Route: 065
     Dates: start: 20120823, end: 20121020

REACTIONS (2)
  - Drug effect decreased [Unknown]
  - Disease progression [Unknown]
